FAERS Safety Report 4465341-0 (Version None)
Quarter: 2004Q3

REPORT INFORMATION
  Report Type: 
  Country: None (occurrence: None)
  Receive Date: 20040929
  Receipt Date: 20040910
  Transmission Date: 20050211
  Serious: Yes (Other)
  Sender: FDA-Public Use
  Company Number: USA040977962

PATIENT
  Age: 59 Year
  Sex: Female

DRUGS (1)
  1. HUMALOG [Suspect]
     Dates: start: 20010101

REACTIONS (8)
  - BLOOD GLUCOSE INCREASED [None]
  - CONTUSION [None]
  - FOOT FRACTURE [None]
  - INFECTION [None]
  - LOSS OF CONSCIOUSNESS [None]
  - LOWER LIMB FRACTURE [None]
  - MEDICATION ERROR [None]
  - TOE AMPUTATION [None]
